FAERS Safety Report 9507027 (Version 1)
Quarter: 2013Q3

REPORT INFORMATION
  Report Type: Spontaneous
  Country: FR (occurrence: None)
  Receive Date: 20130904
  Receipt Date: 20130904
  Transmission Date: 20140515
  Serious: Yes (Hospitalization)
  Sender: FDA-Public Use
  Company Number: B0919559A

PATIENT
  Age: 64 Year
  Sex: Female

DRUGS (4)
  1. ROPINIROLE HYDROCHLORIDE [Suspect]
     Indication: RESTLESS LEGS SYNDROME
  2. FLUOXETINE [Suspect]
     Indication: PRODUCT USED FOR UNKNOWN INDICATION
  3. BUPROPION HYDROCHLORIDE [Suspect]
     Indication: PRODUCT USED FOR UNKNOWN INDICATION
  4. TRAMADOL HYDROCHLORIDE [Concomitant]

REACTIONS (5)
  - Major depression [None]
  - Drug withdrawal syndrome [None]
  - Restless legs syndrome [None]
  - Condition aggravated [None]
  - Weight decreased [None]
